FAERS Safety Report 6470620-1 (Version None)
Quarter: 2009Q4

REPORT INFORMATION
  Report Type: 
  Country: None (occurrence: None)
  Receive Date: 20091203
  Receipt Date: 20090209
  Transmission Date: 20100525
  Serious: No
  Sender: FDA-Public Use
  Company Number: US-ABBOTT-09P-163-0502530-00

PATIENT
  Sex: Male
  Weight: 90.8 kg

DRUGS (5)
  1. MERIDIA [Suspect]
     Indication: WEIGHT DECREASED
     Route: 048
     Dates: start: 20070101
  2. MERIDIA [Suspect]
     Route: 048
  3. MERIDIA [Suspect]
     Route: 048
  4. MERIDIA [Suspect]
     Route: 048
  5. ORLASTAT [Concomitant]
     Indication: WEIGHT DECREASED
     Dosage: NOT REPORTED

REACTIONS (2)
  - APPETITE DISORDER [None]
  - DRUG INEFFECTIVE [None]
